FAERS Safety Report 19114047 (Version 1)
Quarter: 2021Q2

REPORT INFORMATION
  Report Type: Other
  Country: CN (occurrence: CN)
  Receive Date: 20210408
  Receipt Date: 20210408
  Transmission Date: 20210717
  Serious: Yes (Life-Threatening)
  Sender: FDA-Public Use
  Company Number: CN-GE HEALTHCARE LIFE SCIENCES-2021CSU001758

PATIENT

DRUGS (2)
  1. VISIPAQUE [Suspect]
     Active Substance: IODIXANOL
     Indication: ANGIOGRAM CEREBRAL
     Dosage: 6 ML, SINGLE
     Route: 013
     Dates: start: 20210330, end: 20210330
  2. VISIPAQUE [Suspect]
     Active Substance: IODIXANOL
     Indication: INTRACRANIAL ANEURYSM

REACTIONS (2)
  - Unresponsive to stimuli [Recovering/Resolving]
  - Shock [Recovering/Resolving]

NARRATIVE: CASE EVENT DATE: 20210330
